FAERS Safety Report 15356695 (Version 1)
Quarter: 2018Q3

REPORT INFORMATION
  Report Type: Spontaneous
  Country: DE (occurrence: DE)
  Receive Date: 20180906
  Receipt Date: 20180906
  Transmission Date: 20181010
  Serious: Yes (Hospitalization)
  Sender: FDA-Public Use
  Company Number: DE-BAYER-2018-165794

PATIENT
  Age: 47 Year
  Sex: Female
  Weight: 66 kg

DRUGS (1)
  1. MIRENA [Suspect]
     Active Substance: LEVONORGESTREL
     Dosage: 20 MCG/24HR, CONT
     Route: 015

REACTIONS (14)
  - Abdominal distension [Recovering/Resolving]
  - Myalgia [Recovering/Resolving]
  - Alopecia [Recovering/Resolving]
  - Vitamin D deficiency [Recovering/Resolving]
  - Decreased appetite [Recovering/Resolving]
  - Restlessness [Recovering/Resolving]
  - Palpitations [Recovering/Resolving]
  - Anxiety [Recovering/Resolving]
  - Apathy [Recovering/Resolving]
  - Acne [Recovering/Resolving]
  - Formication [Recovering/Resolving]
  - Arthralgia [Recovering/Resolving]
  - Neuralgia [Recovering/Resolving]
  - Vaginal haemorrhage [Recovering/Resolving]

NARRATIVE: CASE EVENT DATE: 20171121
